FAERS Safety Report 7412174-9 (Version None)
Quarter: 2011Q2

REPORT INFORMATION
  Report Type: 
  Country: None (occurrence: None)
  Receive Date: 20110413
  Receipt Date: 20110330
  Transmission Date: 20111010
  Serious: Yes (Death, Life-Threatening, Hospitalization)
  Sender: FDA-Public Use
  Company Number: GR-CELGENEUS-066-C5013-10101353

PATIENT
  Sex: Male
  Weight: 90 kg

DRUGS (11)
  1. DEXAMETHASONE [Suspect]
     Indication: MULTIPLE MYELOMA
     Dosage: 20 MILLIGRAM
     Route: 065
     Dates: start: 20090316
  2. LENALIDOMIDE [Suspect]
     Dosage: 5 MILLIGRAM
     Route: 048
     Dates: start: 20100831, end: 20100920
  3. CARVEDILOL [Concomitant]
     Dosage: 12.5 MILLIGRAM
     Route: 048
     Dates: start: 20020101
  4. LENALIDOMIDE [Suspect]
     Indication: MULTIPLE MYELOMA
     Dosage: 15 MILLIGRAM
     Route: 048
     Dates: start: 20090316
  5. FUROSEMIDE [Concomitant]
     Indication: HYPERTENSION
     Dosage: 40 MILLIGRAM
     Route: 048
     Dates: start: 19990101, end: 20101125
  6. METFORMIN [Concomitant]
     Indication: DIABETES MELLITUS
     Dosage: 850 MILLIGRAM
     Route: 048
     Dates: start: 19940101, end: 20101125
  7. PANTOPRAZOLE [Concomitant]
     Indication: PROPHYLAXIS
     Dosage: 40 MILLIGRAM
     Route: 048
     Dates: start: 20090810
  8. SALOSPIR [Concomitant]
     Dosage: 100 MILLIGRAM
     Route: 048
     Dates: start: 20020101, end: 20101125
  9. SALOSPIR [Concomitant]
  10. DEXAMETHASONE [Suspect]
     Dosage: 20 MILLIGRAM
     Route: 065
     Dates: start: 20100831, end: 20100930
  11. VALACICLOVIR [Concomitant]
     Indication: PROPHYLAXIS
     Dosage: 500 MILLIGRAM
     Route: 048
     Dates: start: 20090316, end: 20101125

REACTIONS (8)
  - ANAEMIA [None]
  - RESPIRATORY TRACT INFECTION [None]
  - BACTERAEMIA [None]
  - GENERAL PHYSICAL HEALTH DETERIORATION [None]
  - NEUTROPENIA [None]
  - THROMBOCYTOPENIA [None]
  - SEPTIC SHOCK [None]
  - PYREXIA [None]
